FAERS Safety Report 8828089 (Version 2)
Quarter: 2012Q4

REPORT INFORMATION
  Report Type: 
  Country: CN (occurrence: CN)
  Receive Date: 20121005
  Receipt Date: 20121210
  Transmission Date: 20130627
  Serious: Yes (Hospitalization)
  Sender: FDA-Public Use
  Company Number: CN-JNJFOC-20120912722

PATIENT
  Age: 56 Year
  Sex: Female

DRUGS (2)
  1. TYLENOL COLD [Suspect]
     Indication: NASOPHARYNGITIS
     Route: 048
     Dates: start: 20100928, end: 20101002
  2. ANALGIN [Suspect]
     Indication: NASOPHARYNGITIS
     Route: 065

REACTIONS (3)
  - Gastric ulcer haemorrhage [Recovering/Resolving]
  - Vomiting [Recovering/Resolving]
  - Melaena [Recovering/Resolving]
